FAERS Safety Report 4415508-2 (Version None)
Quarter: 2004Q3

REPORT INFORMATION
  Report Type: 
  Country: None (occurrence: None)
  Receive Date: 20040729
  Receipt Date: 20040720
  Transmission Date: 20050211
  Serious: Yes (Death, Hospitalization)
  Sender: FDA-Public Use
  Company Number: US-JNJFOC-20040405947

PATIENT
  Age: 84 Year
  Sex: Female

DRUGS (11)
  1. REMINYL [Suspect]
     Indication: COGNITIVE DISORDER
     Dosage: ORAL
     Route: 048
     Dates: start: 20031201
  2. LIPITOR [Concomitant]
  3. NORVASC [Concomitant]
  4. CLONIDINE [Concomitant]
  5. LEXAPRO [Concomitant]
  6. ZAROXOLYIN (METOLANZONE) [Concomitant]
  7. ALLOPURINOL [Concomitant]
  8. DIOVAN [Concomitant]
  9. MULTIVITAMIN (MULTIVITAMINS) [Concomitant]
  10. VITAMINE E (TOCOPHEROL) [Concomitant]
  11. KEPPRA [Concomitant]

REACTIONS (19)
  - ABNORMAL BEHAVIOUR [None]
  - BLOOD ALBUMIN DECREASED [None]
  - BLOOD CALCIUM DECREASED [None]
  - BRAIN CANCER METASTATIC [None]
  - CEREBROVASCULAR ACCIDENT [None]
  - CONVULSION [None]
  - DISORIENTATION [None]
  - ELECTROENCEPHALOGRAM ABNORMAL [None]
  - HAEMATOCRIT DECREASED [None]
  - HAEMOGLOBIN DECREASED [None]
  - HERPES ZOSTER OPHTHALMIC [None]
  - INTERNATIONAL NORMALISED RATIO DECREASED [None]
  - NERVOUS SYSTEM DISORDER [None]
  - PLATELET COUNT DECREASED [None]
  - POSTICTAL STATE [None]
  - PROTEIN TOTAL DECREASED [None]
  - PROTHROMBIN TIME PROLONGED [None]
  - RED BLOOD CELL COUNT DECREASED [None]
  - SUBDURAL HAEMATOMA [None]
